FAERS Safety Report 24745667 (Version 2)
Quarter: 2025Q1

REPORT INFORMATION
  Report Type: Report from Study
  Country: US (occurrence: US)
  Receive Date: 20241218
  Receipt Date: 20250218
  Transmission Date: 20250408
  Serious: Yes (Other)
  Sender: UCB
  Company Number: US-UCBSA-2024064794

PATIENT
  Age: 14 Year
  Sex: Male
  Weight: 66 kg

DRUGS (1)
  1. FINTEPLA [Suspect]
     Active Substance: FENFLURAMINE
     Indication: Seizure
     Dates: start: 20240313, end: 20240601

REACTIONS (3)
  - Pulmonary valve incompetence [Not Recovered/Not Resolved]
  - Ventricular septal defect [Not Recovered/Not Resolved]
  - Dilatation ventricular [Not Recovered/Not Resolved]

NARRATIVE: CASE EVENT DATE: 20241206
